FAERS Safety Report 23802376 (Version 1)
Quarter: 2024Q2

REPORT INFORMATION
  Report Type: Report from Study
  Country: US (occurrence: US)
  Receive Date: 20240501
  Receipt Date: 20240501
  Transmission Date: 20240716
  Serious: Yes (Other)
  Sender: FDA-Public Use
  Company Number: US-ABBVIE-5735777

PATIENT
  Sex: Female

DRUGS (2)
  1. HUMIRA [Suspect]
     Active Substance: ADALIMUMAB
     Indication: Product used for unknown indication
     Route: 058
  2. RINVOQ [Suspect]
     Active Substance: UPADACITINIB
     Indication: Product used for unknown indication
     Route: 048

REACTIONS (9)
  - Cholecystectomy [Recovered/Resolved]
  - Condition aggravated [Unknown]
  - Therapeutic product effect delayed [Unknown]
  - Gastrointestinal injury [Recovering/Resolving]
  - Premature baby [Unknown]
  - Unevaluable event [Recovered/Resolved]
  - Cholangitis sclerosing [Unknown]
  - Maternal exposure during pregnancy [Unknown]
  - Live birth [Unknown]
